FAERS Safety Report 9014066 (Version 2)
Quarter: 2013Q1

REPORT INFORMATION
  Report Type: Spontaneous
  Country: US (occurrence: US)
  Receive Date: 20130115
  Receipt Date: 20130212
  Transmission Date: 20140127
  Serious: Yes (Other)
  Sender: FDA-Public Use
  Company Number: US-PFIZER INC-2013011091

PATIENT
  Age: 40 Year
  Sex: Male

DRUGS (2)
  1. GLUCOTROL XL [Suspect]
     Dosage: 10 MG, 1X/DAY
  2. METFORMIN [Suspect]
     Dosage: UNK

REACTIONS (1)
  - Myocardial infarction [Unknown]
